FAERS Safety Report 19476082 (Version 5)
Quarter: 2021Q3

REPORT INFORMATION
  Report Type: Report from Study
  Country: None (occurrence: US)
  Receive Date: 20210630
  Receipt Date: 20210923
  Transmission Date: 20211014
  Serious: Yes (Hospitalization, Other)
  Sender: FDA-Public Use
  Company Number: US-ABBVIE-21K-163-3969213-00

PATIENT
  Age: 74 Year
  Sex: Male
  Weight: 60.84 kg

DRUGS (15)
  1. TRAZODONE [Concomitant]
     Active Substance: TRAZODONE HYDROCHLORIDE
     Indication: PRODUCT USED FOR UNKNOWN INDICATION
     Route: 048
  2. PREVACID [Concomitant]
     Active Substance: LANSOPRAZOLE
     Indication: PRODUCT USED FOR UNKNOWN INDICATION
     Route: 048
  3. SEROQUEL [Concomitant]
     Active Substance: QUETIAPINE FUMARATE
     Indication: PRODUCT USED FOR UNKNOWN INDICATION
  4. ATIVAN [Concomitant]
     Active Substance: LORAZEPAM
     Indication: PRODUCT USED FOR UNKNOWN INDICATION
  5. DUOPA [Suspect]
     Active Substance: CARBIDOPA\LEVODOPA
     Indication: PARKINSON^S DISEASE
     Dosage: 4.63 MG/ML 20 MG/ML
     Route: 050
     Dates: start: 20171107
  6. TYLENOL [Concomitant]
     Active Substance: ACETAMINOPHEN
     Indication: PRODUCT USED FOR UNKNOWN INDICATION
     Route: 048
  7. MIDODRINE [Concomitant]
     Active Substance: MIDODRINE
     Indication: PRODUCT USED FOR UNKNOWN INDICATION
  8. WARFARIN [Concomitant]
     Active Substance: WARFARIN
     Indication: CARDIAC PACEMAKER INSERTION
     Route: 048
     Dates: end: 202106
  9. VENLAFAXINE [Concomitant]
     Active Substance: VENLAFAXINE HYDROCHLORIDE
     Indication: PRODUCT USED FOR UNKNOWN INDICATION
     Route: 048
  10. DUOPA [Suspect]
     Active Substance: CARBIDOPA\LEVODOPA
  11. PFIZER?BIONTECH COVID?19 VACCINE [Concomitant]
     Active Substance: TOZINAMERAN
     Route: 030
     Dates: start: 20210227, end: 20210227
  12. MIRALAX [Concomitant]
     Active Substance: POLYETHYLENE GLYCOL 3350
     Indication: PRODUCT USED FOR UNKNOWN INDICATION
     Route: 048
  13. PFIZER?BIONTECH COVID?19 VACCINE [Concomitant]
     Active Substance: TOZINAMERAN
     Indication: COVID-19 IMMUNISATION
     Route: 030
     Dates: start: 20210206, end: 20210206
  14. WARFARIN [Concomitant]
     Active Substance: WARFARIN
     Indication: STENT PLACEMENT
  15. VITAMIN D3 [Concomitant]
     Active Substance: CHOLECALCIFEROL
     Indication: PRODUCT USED FOR UNKNOWN INDICATION

REACTIONS (18)
  - Abnormal behaviour [Unknown]
  - Weight decreased [Unknown]
  - Syncope [Not Recovered/Not Resolved]
  - Skin laceration [Unknown]
  - Syncope [Recovered/Resolved]
  - Pneumonia aspiration [Recovered/Resolved]
  - Head injury [Recovered/Resolved]
  - Exercise tolerance decreased [Not Recovered/Not Resolved]
  - Seizure like phenomena [Not Recovered/Not Resolved]
  - Fall [Recovered/Resolved]
  - Off label use [Unknown]
  - Device occlusion [Recovered/Resolved]
  - Skin laceration [Recovered/Resolved]
  - Device connection issue [Unknown]
  - Cerebral haemorrhage [Unknown]
  - Device breakage [Not Recovered/Not Resolved]
  - Subarachnoid haemorrhage [Unknown]
  - Arterial rupture [Unknown]

NARRATIVE: CASE EVENT DATE: 2020
